FAERS Safety Report 10551747 (Version 6)
Quarter: 2016Q1

REPORT INFORMATION
  Report Type: Spontaneous
  Country: US (occurrence: US)
  Receive Date: 20141029
  Receipt Date: 20160226
  Transmission Date: 20160525
  Serious: Yes (Hospitalization, Other)
  Sender: FDA-Public Use
  Company Number: US-PFIZER INC-2014296319

PATIENT
  Age: 75 Year
  Sex: Female
  Weight: 91 kg

DRUGS (20)
  1. DILANTIN [Suspect]
     Active Substance: PHENYTOIN
     Indication: SEIZURE
     Dosage: 100 MG, 3-100 MG PER DAY
     Route: 048
     Dates: start: 1976
  2. PREDNISOLONE ACETATE. [Concomitant]
     Active Substance: PREDNISOLONE ACETATE
     Dosage: 4 DROPS ONCE A DAY ON LEFT EYE
     Route: 047
     Dates: start: 20150107
  3. CPAP [Concomitant]
     Active Substance: DEVICE
     Dosage: UNK
     Dates: start: 20110525
  4. VENTOLIN [Concomitant]
     Active Substance: ALBUTEROL SULFATE
     Dosage: UNK
  5. MURO 128 [Concomitant]
     Active Substance: SODIUM CHLORIDE
     Dosage: 4-6 DROPS ONCE A DAY IN LEFT EYE
     Route: 047
     Dates: start: 20110518
  6. PREDNISOLONE. [Concomitant]
     Active Substance: PREDNISOLONE
     Dosage: UNK
     Dates: start: 201412
  7. ZONEGRAN [Concomitant]
     Active Substance: ZONISAMIDE
     Indication: SEIZURE
     Dosage: 300 MG (3 CAPSULE), 1X/DAY
     Route: 048
     Dates: start: 20131204
  8. DILANTIN [Suspect]
     Active Substance: PHENYTOIN
     Dosage: 100 MG, 1 A DAY, AT BEDTIME
     Route: 048
     Dates: start: 20131204
  9. AMLODIPINE [Concomitant]
     Active Substance: AMLODIPINE BESYLATE
     Dosage: 10 MG, 1/2 PILL
  10. KEPPRA [Concomitant]
     Active Substance: LEVETIRACETAM
     Indication: SEIZURE
     Dosage: 250 MG, 2X/DAY
     Route: 048
     Dates: start: 20140409
  11. REVATIO [Suspect]
     Active Substance: SILDENAFIL CITRATE
     Indication: PULMONARY HYPERTENSION
     Dosage: 20 MG, 3X/DAY
     Route: 048
     Dates: start: 201309
  12. REVATIO [Suspect]
     Active Substance: SILDENAFIL CITRATE
     Dosage: 20 MG, 3X/DAY
     Route: 048
     Dates: start: 20141015
  13. CALCIUM+ D [Concomitant]
     Dosage: UNK
     Route: 048
     Dates: start: 20110429
  14. MURO 128 [Concomitant]
     Active Substance: SODIUM CHLORIDE
     Dosage: 1 APPLICATION EVERY NIGHT AT BEDTIME ON LEFT EYE)
     Route: 047
     Dates: start: 20150107
  15. AMLODIPINE BESYLATE. [Concomitant]
     Active Substance: AMLODIPINE BESYLATE
     Dosage: 50 MG (5 TABLETS), 1X/DAY
     Route: 048
     Dates: start: 20131204
  16. ASPIRIN. [Concomitant]
     Active Substance: ASPIRIN
     Dosage: 325 MG, 1X/DAY
     Route: 048
     Dates: start: 20140821
  17. PROAIR HFA [Concomitant]
     Active Substance: ALBUTEROL SULFATE
     Dosage: 2 PUFFS FOUR TIMES A DAY AS NEEDED
     Route: 055
     Dates: start: 20150528
  18. VITAMIN D [Concomitant]
     Active Substance: CHOLECALCIFEROL
     Dosage: UNK
     Route: 048
     Dates: start: 20110429
  19. FUROSEMIDE. [Concomitant]
     Active Substance: FUROSEMIDE
     Dosage: 40 MG, 1X/DAY
     Route: 048
     Dates: start: 20131204
  20. DIOVAN [Concomitant]
     Active Substance: VALSARTAN
     Dosage: UNK

REACTIONS (4)
  - Seizure [Unknown]
  - Lyme disease [Unknown]
  - Vitamin B complex deficiency [Not Recovered/Not Resolved]
  - Neuropathy peripheral [Not Recovered/Not Resolved]

NARRATIVE: CASE EVENT DATE: 2014
